FAERS Safety Report 11809733 (Version 2)
Quarter: 2016Q4

REPORT INFORMATION
  Report Type: Report from Study
  Country: US (occurrence: US)
  Receive Date: 20151208
  Receipt Date: 20161221
  Transmission Date: 20170206
  Serious: Yes (Other)
  Sender: FDA-Public Use
  Company Number: US-AMGEN-USASL2015129158

PATIENT
  Age: 47 Year
  Sex: Male

DRUGS (1)
  1. ENBREL [Suspect]
     Active Substance: ETANERCEPT
     Indication: PSORIATIC ARTHROPATHY
     Dosage: 50 MG, QWK
     Route: 065
     Dates: start: 20110308

REACTIONS (5)
  - Hip fracture [Unknown]
  - Device related infection [Unknown]
  - Fall [Unknown]
  - Device fastener issue [Unknown]
  - Septic arthritis staphylococcal [Unknown]

NARRATIVE: CASE EVENT DATE: 201608
